FAERS Safety Report 7836334-8 (Version None)
Quarter: 2011Q4

REPORT INFORMATION
  Report Type: 
  Country: None (occurrence: None)
  Receive Date: 20111024
  Receipt Date: 20110210
  Transmission Date: 20120403
  Serious: No
  Sender: FDA-Public Use
  Company Number: US-ABBOTT-11P-163-0705040-00

PATIENT
  Sex: Male
  Weight: 87.622 kg

DRUGS (1)
  1. LUPRON DEPOT [Suspect]
     Indication: PROSTATE CANCER
     Route: 030
     Dates: start: 20100801

REACTIONS (14)
  - HOT FLUSH [None]
  - BREAST TENDERNESS [None]
  - MUSCLE ATROPHY [None]
  - FATIGUE [None]
  - LIBIDO DECREASED [None]
  - BREAST ENLARGEMENT [None]
  - BLOOD CHOLESTEROL INCREASED [None]
  - DEPRESSION [None]
  - MENTAL DISORDER [None]
  - ERECTILE DYSFUNCTION [None]
  - SUPRAVENTRICULAR TACHYCARDIA [None]
  - WEIGHT INCREASED [None]
  - TACHYCARDIA [None]
  - MYALGIA [None]
